FAERS Safety Report 5370127-9 (Version None)
Quarter: 2007Q2

REPORT INFORMATION
  Report Type: 
  Country: None (occurrence: None)
  Receive Date: 20070626
  Receipt Date: 20070613
  Transmission Date: 20071010
  Serious: Yes (Hospitalization)
  Sender: FDA-Public Use
  Company Number: US-ELI_LILLY_AND_COMPANY-US200706003001

PATIENT
  Age: 47 Year
  Sex: Female

DRUGS (6)
  1. HUMULIN N [Suspect]
  2. GLIPIZIDE [Concomitant]
     Dosage: 10 MG, UNK
  3. SINGULAIR [Concomitant]
     Indication: ASTHMA
     Dosage: 10 MG, DAILY (1/D)
  4. ALBUTEROL [Concomitant]
     Indication: ASTHMA
     Route: 055
  5. ADVAIR DISKUS 100/50 [Concomitant]
     Indication: ASTHMA
  6. ZOLOFT [Concomitant]

REACTIONS (10)
  - ARTHRITIS [None]
  - ASTHMA [None]
  - BLOOD GLUCOSE INCREASED [None]
  - DIVERTICULITIS [None]
  - DYSPNOEA [None]
  - FALL [None]
  - NASOPHARYNGITIS [None]
  - PAIN [None]
  - PNEUMONIA [None]
  - STRESS [None]
